FAERS Safety Report 6604391-2 (Version None)
Quarter: 2010Q1

REPORT INFORMATION
  Report Type: 
  Country: None (occurrence: None)
  Receive Date: 20100226
  Receipt Date: 20090917
  Transmission Date: 20100710
  Serious: No
  Sender: FDA-Public Use
  Company Number: A0807875A

PATIENT
  Age: 29 Year
  Sex: Female
  Weight: 104.5 kg

DRUGS (8)
  1. LAMICTAL CD [Suspect]
     Route: 048
  2. CELEXA [Suspect]
     Route: 065
  3. NIASPAN [Suspect]
     Dosage: 500MG TWICE PER DAY
     Route: 048
  4. UNSPECIFIED MEDICATION [Suspect]
     Route: 065
  5. CITALOPRAM HYDROBROMIDE [Concomitant]
  6. DICLOFENAC [Concomitant]
  7. CO-DIOVAN [Concomitant]
  8. ASPIRIN [Concomitant]

REACTIONS (3)
  - CHROMATURIA [None]
  - FAECES DISCOLOURED [None]
  - HYPERHIDROSIS [None]
